FAERS Safety Report 17812009 (Version 5)
Quarter: 2022Q3

REPORT INFORMATION
  Report Type: Other
  Country: US (occurrence: None)
  Receive Date: 20200521
  Receipt Date: 20220715
  Transmission Date: 20221027
  Serious: Yes (Hospitalization, Other)
  Sender: FDA-Public Use
  Company Number: US-ROCHE-2598385

PATIENT
  Age: 61 Year
  Sex: Female
  Weight: 73.548 kg

DRUGS (6)
  1. OCREVUS [Suspect]
     Active Substance: OCRELIZUMAB
     Indication: Primary progressive multiple sclerosis
     Dosage: INFUSE 300MG ON DAY 1 AND DAY 15, INFUSE 600MG Q 6 MONTHS: //2018?DATE OF TREATMENT: 09-DEC-2019, 07
     Route: 042
     Dates: start: 20180530
  2. LASIX [Concomitant]
     Active Substance: FUROSEMIDE
  3. LISINOPRIL [Concomitant]
     Active Substance: LISINOPRIL
  4. TRAMADOL [Concomitant]
     Active Substance: TRAMADOL
  5. BACLOFEN [Concomitant]
     Active Substance: BACLOFEN
  6. ESTRADIOL [Concomitant]
     Active Substance: ESTRADIOL

REACTIONS (15)
  - Dehydration [Recovered/Resolved]
  - Encephalopathy [Recovered/Resolved]
  - Multiple sclerosis [Recovered/Resolved]
  - Fibula fracture [Not Recovered/Not Resolved]
  - Renal failure [Recovered/Resolved]
  - Ankle fracture [Not Recovered/Not Resolved]
  - Kidney infection [Recovered/Resolved]
  - Fall [Unknown]
  - Joint instability [Recovering/Resolving]
  - Asthenia [Recovering/Resolving]
  - Hypotonia [Recovering/Resolving]
  - Balance disorder [Recovered/Resolved]
  - Memory impairment [Not Recovered/Not Resolved]
  - Anxiety [Unknown]
  - Gait inability [Not Recovered/Not Resolved]

NARRATIVE: CASE EVENT DATE: 20190701
